FAERS Safety Report 4436517-3 (Version None)
Quarter: 2004Q3

REPORT INFORMATION
  Report Type: 
  Country: None (occurrence: None)
  Receive Date: 20040830
  Receipt Date: 20040607
  Transmission Date: 20050211
  Serious: Yes (Hospitalization)
  Sender: FDA-Public Use
  Company Number: US-BRISTOL-MYERS SQUIBB COMPANY-12608303

PATIENT
  Age: 10 Year
  Sex: Male
  Weight: 42 kg

DRUGS (2)
  1. ABILIFY [Suspect]
     Indication: ASPERGER'S DISORDER
     Dosage: DOSING DISCONTINUED DURING THE PATIENT'S HOSPITALIZATION.
     Route: 048
  2. ZOLOFT [Concomitant]
     Dosage: FOR AT LEAST ONE YEAR

REACTIONS (1)
  - NEUROLEPTIC MALIGNANT SYNDROME [None]
